FAERS Safety Report 9337523 (Version 1)
Quarter: 2013Q2

REPORT INFORMATION
  Report Type: Spontaneous
  Country: US (occurrence: US)
  Receive Date: 20130607
  Receipt Date: 20130607
  Transmission Date: 20140414
  Serious: Yes (Disabling, Other)
  Sender: FDA-Public Use
  Company Number: CHPA2013US009385

PATIENT
  Sex: Female

DRUGS (2)
  1. EXCEDRIN MIGRAINE [Suspect]
     Indication: TENSION HEADACHE
     Dosage: 2 TO 8 DF, A DAY
     Route: 048
  2. EXCEDRIN MIGRAINE [Suspect]
     Indication: MIGRAINE
     Dosage: 2 TO 8 DF, A DAY
     Route: 048

REACTIONS (10)
  - Activities of daily living impaired [Not Recovered/Not Resolved]
  - Endometrial cancer [Recovered/Resolved]
  - Anaemia [Unknown]
  - Barrett^s oesophagus [Recovered/Resolved]
  - Gastrointestinal pain [Unknown]
  - Constipation [Recovered/Resolved]
  - Abdominal pain lower [Not Recovered/Not Resolved]
  - Diarrhoea [Recovered/Resolved]
  - Pain [Not Recovered/Not Resolved]
  - Off label use [Unknown]
